FAERS Safety Report 5425599-8 (Version None)
Quarter: 2007Q3

REPORT INFORMATION
  Report Type: 
  Country: None (occurrence: None)
  Receive Date: 20070824
  Receipt Date: 20070813
  Transmission Date: 20080115
  Serious: Yes (Other)
  Sender: FDA-Public Use
  Company Number: US-PFIZER INC-2007067756

PATIENT
  Age: 29 Year
  Sex: Female

DRUGS (16)
  1. EXUBERA [Suspect]
     Indication: TYPE 2 DIABETES MELLITUS
     Dates: start: 20070710, end: 20070718
  2. ANCEF [Concomitant]
     Route: 042
  3. ANCEF [Concomitant]
     Route: 055
  4. LACTATED RINGER'S [Concomitant]
     Route: 042
  5. FENOFIBRATE [Concomitant]
  6. VITAMIN B6 [Concomitant]
  7. VITAMIN B-12 [Concomitant]
  8. AVAPRO [Concomitant]
  9. LANTUS [Concomitant]
  10. CRESTOR [Concomitant]
  11. NIASPAN [Concomitant]
  12. FOLIC ACID [Concomitant]
  13. NOVOLOG [Concomitant]
     Dosage: FREQ:WITH MEALS
  14. PLETAL [Concomitant]
  15. ASPIRIN [Concomitant]
  16. JANUVIA [Concomitant]

REACTIONS (1)
  - FACE OEDEMA [None]
